FAERS Safety Report 25207345 (Version 1)
Quarter: 2025Q2

REPORT INFORMATION
  Report Type: Spontaneous
  Country: US (occurrence: None)
  Receive Date: 20250416
  Receipt Date: 20250416
  Transmission Date: 20250716
  Serious: Yes (Hospitalization)
  Sender: FDA-CTU
  Company Number: None

PATIENT
  Sex: Female

DRUGS (1)
  1. ENBREL [Suspect]
     Active Substance: ETANERCEPT
     Indication: Rheumatoid arthritis
     Dosage: OTHER FREQUENCY : EVERY 7 DAYS;?
     Route: 058
     Dates: start: 20241224

REACTIONS (8)
  - Joint swelling [None]
  - Arthralgia [None]
  - Insurance issue [None]
  - Therapy interrupted [None]
  - Shoulder fracture [None]
  - Peripheral swelling [None]
  - Generalised oedema [None]
  - Pain [None]
